FAERS Safety Report 18699544 (Version 1)
Quarter: 2021Q1

REPORT INFORMATION
  Report Type: Spontaneous
  Country: US (occurrence: US)
  Receive Date: 20210101
  Receipt Date: 20210101
  Transmission Date: 20210419
  Serious: Yes (Hospitalization)
  Sender: FDA-Public Use
  Company Number: None

PATIENT
  Age: 12 Year
  Sex: Female
  Weight: 47.2 kg

DRUGS (9)
  1. DEXAMETHASONE. [Suspect]
     Active Substance: DEXAMETHASONE
     Dates: end: 20201221
  2. DAUNORUBICIN [Suspect]
     Active Substance: DAUNORUBICIN
     Dates: end: 20201221
  3. IFOSFAMIDE. [Suspect]
     Active Substance: IFOSFAMIDE
     Dates: end: 20201220
  4. MESNA. [Suspect]
     Active Substance: MESNA
     Dates: end: 20201220
  5. METHOTREXATE. [Suspect]
     Active Substance: METHOTREXATE
     Dates: end: 20201217
  6. ZINECARD [Suspect]
     Active Substance: DEXRAZOXANE HYDROCHLORIDE
     Dates: end: 20201221
  7. ONCASPAR [Suspect]
     Active Substance: PEGASPARGASE
     Dates: end: 20201222
  8. CYTARABINE. [Suspect]
     Active Substance: CYTARABINE
     Dates: end: 20201217
  9. LEUCOVORIN CALCIUM. [Suspect]
     Active Substance: LEUCOVORIN CALCIUM
     Dates: end: 20201219

REACTIONS (6)
  - Epistaxis [None]
  - Vomiting [None]
  - Pain in extremity [None]
  - Pyrexia [None]
  - Sepsis [None]
  - Escherichia test positive [None]

NARRATIVE: CASE EVENT DATE: 20201228
